FAERS Safety Report 10371791 (Version 1)
Quarter: 2014Q3

REPORT INFORMATION
  Report Type: Spontaneous
  Country: GB (occurrence: GB)
  Receive Date: 20140808
  Receipt Date: 20140808
  Transmission Date: 20150326
  Serious: Yes (Hospitalization)
  Sender: FDA-Public Use
  Company Number: GB-PFIZER INC-2014221382

PATIENT
  Age: 6 Decade
  Sex: Female
  Weight: 44 kg

DRUGS (6)
  1. ACETYLSALICYLIC ACID [Concomitant]
     Active Substance: ASPIRIN
     Dosage: UNK
  2. CLOPIDOGREL [Concomitant]
     Active Substance: CLOPIDOGREL BISULFATE
     Dosage: UNK
  3. THIAMINE [Concomitant]
     Active Substance: THIAMINE
     Dosage: UNK
  4. SIMVASTATIN. [Concomitant]
     Active Substance: SIMVASTATIN
     Dosage: UNK
  5. VITAMIN B COMPOUND STRONG [Concomitant]
     Dosage: UNK
  6. CHAMPIX [Suspect]
     Active Substance: VARENICLINE TARTRATE
     Indication: SMOKING CESSATION THERAPY
     Dosage: 1 MG, 2X/DAY
     Dates: start: 20140710, end: 20140727

REACTIONS (3)
  - Gait disturbance [Recovered/Resolved]
  - Vision blurred [Unknown]
  - Asthenia [Unknown]

NARRATIVE: CASE EVENT DATE: 20140724
